FAERS Safety Report 8798782 (Version 1)
Quarter: 2012Q4

REPORT INFORMATION
  Report Type: 
  Country: FR (occurrence: US)
  Receive Date: 20120920
  Receipt Date: 20120920
  Transmission Date: 20130627
  Serious: Yes (Other)
  Sender: FDA-Public Use
  Company Number: US-009507513-1209USA003481

PATIENT
  Sex: Male

DRUGS (5)
  1. ISENTRESS [Suspect]
     Dosage: 400 mg, bid
     Route: 048
  2. KIVEXA [Suspect]
     Dosage: 1 DF, qd
  3. ZOLPIDEM TARTRATE [Concomitant]
  4. CARDENSIEL [Concomitant]
  5. EXFORGE [Concomitant]

REACTIONS (14)
  - Eosinophilia [Unknown]
  - Pruritus generalised [Unknown]
  - Rash follicular [Unknown]
  - Hypersensitivity [Unknown]
  - Rash maculo-papular [Unknown]
  - Face oedema [Unknown]
  - Enanthema [Unknown]
  - Drug reaction with eosinophilia and systemic symptoms [Unknown]
  - Pharyngitis [Unknown]
  - Rash pustular [Unknown]
  - Lip oedema [Unknown]
  - Aphthous stomatitis [Unknown]
  - Mouth ulceration [Unknown]
  - Eye oedema [Unknown]
